FAERS Safety Report 6790917-5 (Version None)
Quarter: 2010Q2

REPORT INFORMATION
  Report Type: 
  Country: None (occurrence: None)
  Receive Date: 20100624
  Receipt Date: 20100616
  Transmission Date: 20101027
  Serious: Yes (Hospitalization)
  Sender: FDA-Public Use
  Company Number: Z0002351A

PATIENT
  Age: 53 Year
  Sex: Male
  Weight: 143.8 kg

DRUGS (1)
  1. PAZOPANIB [Suspect]
     Indication: RENAL CELL CARCINOMA
     Dosage: 800MG PER DAY
     Route: 048
     Dates: start: 20090603, end: 20100113

REACTIONS (1)
  - ANAL ULCER HAEMORRHAGE [None]
